FAERS Safety Report 7894295-X (Version None)
Quarter: 2011Q4

REPORT INFORMATION
  Report Type: 
  Country: None (occurrence: None)
  Receive Date: 20111104
  Receipt Date: 20111024
  Transmission Date: 20120403
  Serious: Yes (Other)
  Sender: FDA-Public Use
  Company Number: JP-WATSON-2011-16042

PATIENT
  Age: 86 Year
  Sex: Male

DRUGS (4)
  1. NEDAPLATIN [Suspect]
     Dosage: 5 MG/KG, UNK
     Route: 042
  2. FLUOROURACIL [Suspect]
     Dosage: 250 MG/BODY X20 D, EXCEPT WEEKEND/HOLIDAY
     Route: 042
  3. FLUOROURACIL [Suspect]
     Indication: OESOPHAGEAL ADENOCARCINOMA
     Dosage: 500 MG/KG, AS POST-TREATMENT X 5 DAYS
  4. NEDAPLATIN [Suspect]
     Indication: OESOPHAGEAL ADENOCARCINOMA
     Dosage: 10 MG/KG, AS ADJUVANT THERAPY
     Route: 042

REACTIONS (5)
  - PERICARDITIS [None]
  - THROMBOCYTOPENIA [None]
  - OEDEMA [None]
  - PLEURISY [None]
  - LEUKOPENIA [None]
